FAERS Safety Report 10520667 (Version 1)
Quarter: 2014Q4

REPORT INFORMATION
  Report Type: Report from Study
  Country: US (occurrence: US)
  Receive Date: 20141015
  Receipt Date: 20141015
  Transmission Date: 20150528
  Serious: Yes (Hospitalization, Other)
  Sender: FDA-Public Use
  Company Number: PHEH2014US019352

PATIENT
  Sex: Female

DRUGS (5)
  1. SANDOSTATIN LAR DEPOT [Suspect]
     Active Substance: OCTREOTIDE ACETATE
     Indication: HYPOVOLAEMIA
  2. SANDOSTATIN LAR DEPOT [Suspect]
     Active Substance: OCTREOTIDE ACETATE
     Indication: DIPHTHERIA CARRIER
     Dosage: 20 MG, QMO
     Route: 065
  3. SANDOSTATIN LAR DEPOT [Suspect]
     Active Substance: OCTREOTIDE ACETATE
     Indication: OFF LABEL USE
  4. SANDOSTATIN LAR DEPOT [Suspect]
     Active Substance: OCTREOTIDE ACETATE
     Indication: MALABSORPTION
  5. SANDOSTATIN LAR DEPOT [Suspect]
     Active Substance: OCTREOTIDE ACETATE
     Indication: SHORT-BOWEL SYNDROME

REACTIONS (13)
  - Malabsorption [Unknown]
  - Malnutrition [Unknown]
  - Hypovitaminosis [Unknown]
  - Gastrointestinal stoma complication [Unknown]
  - Hypotension [Unknown]
  - Infection [Unknown]
  - Dumping syndrome [Unknown]
  - Mineral deficiency [Unknown]
  - Allergy to arthropod bite [Unknown]
  - Presyncope [Unknown]
  - Acute kidney injury [Unknown]
  - Short-bowel syndrome [Unknown]
  - Osteoporosis [Unknown]
